FAERS Safety Report 22668872 (Version 5)
Quarter: 2025Q4

REPORT INFORMATION
  Report Type: Spontaneous
  Country: US (occurrence: US)
  Receive Date: 20230704
  Receipt Date: 20251217
  Transmission Date: 20260118
  Serious: No
  Sender: PFIZER
  Company Number: US-PFIZER INC-202300235135

PATIENT
  Age: 53 Year
  Sex: Female
  Weight: 97.07 kg

DRUGS (1)
  1. GENOTROPIN [Suspect]
     Active Substance: SOMATROPIN
     Indication: Growth hormone deficiency
     Dosage: 0.6 MG, DAILY
     Dates: start: 202304

REACTIONS (10)
  - Weight decreased [Unknown]
  - Exposure via skin contact [Unknown]
  - Accidental exposure to product [Unknown]
  - Poor quality device used [Unknown]
  - Incorrect dose administered by device [Unknown]
  - Device use issue [Unknown]
  - Device information output issue [Unknown]
  - Device breakage [Unknown]
  - Device leakage [Unknown]
  - Device power source issue [Unknown]
